FAERS Safety Report 13279551 (Version 1)
Quarter: 2017Q1

REPORT INFORMATION
  Report Type: Spontaneous
  Country: FR (occurrence: FR)
  Receive Date: 20170228
  Receipt Date: 20170228
  Transmission Date: 20170428
  Serious: Yes (Life-Threatening, Hospitalization, Other)
  Sender: FDA-Public Use
  Company Number: FR-BRISTOL-MYERS SQUIBB COMPANY-BMS-2017-014881

PATIENT
  Age: 83 Year
  Sex: Female

DRUGS (1)
  1. COUMADINE [Suspect]
     Active Substance: WARFARIN SODIUM
     Indication: ATRIAL FIBRILLATION
     Dosage: UNK UNK, BID
     Route: 048
     Dates: end: 20160115

REACTIONS (7)
  - Overdose [Unknown]
  - Peritoneal haemorrhage [Recovering/Resolving]
  - Transfusion [Unknown]
  - International normalised ratio increased [Recovering/Resolving]
  - Shock haemorrhagic [Recovering/Resolving]
  - Acute kidney injury [Recovering/Resolving]
  - Mesenteric haematoma [Recovering/Resolving]

NARRATIVE: CASE EVENT DATE: 20170113
